APPROVED DRUG PRODUCT: GLIMEPIRIDE
Active Ingredient: GLIMEPIRIDE
Strength: 1MG
Dosage Form/Route: TABLET;ORAL
Application: A077295 | Product #001 | TE Code: AB
Applicant: CHARTWELL MOLECULAR HOLDINGS LLC
Approved: Oct 6, 2005 | RLD: No | RS: No | Type: RX